FAERS Safety Report 14594770 (Version 1)
Quarter: 2018Q1

REPORT INFORMATION
  Report Type: Spontaneous
  Country: US (occurrence: US)
  Receive Date: 20180302
  Receipt Date: 20180302
  Transmission Date: 20180509
  Serious: No
  Sender: FDA-Public Use
  Company Number: US-AKORN PHARMACEUTICALS-2017AKN00413

PATIENT
  Sex: Female
  Weight: 73.47 kg

DRUGS (4)
  1. ZYRTEC [Concomitant]
     Active Substance: CETIRIZINE HYDROCHLORIDE
  2. MYORISAN [Suspect]
     Active Substance: ISOTRETINOIN
     Indication: ACNE
     Dosage: 40 MG, 2X/DAY
     Route: 048
     Dates: start: 20170123
  3. NASONEX [Concomitant]
     Active Substance: MOMETASONE FUROATE
  4. METOPROLOL. [Concomitant]
     Active Substance: METOPROLOL

REACTIONS (1)
  - Melanocytic naevus [Recovered/Resolved]
